FAERS Safety Report 10158187 (Version 1)
Quarter: 2014Q2

REPORT INFORMATION
  Report Type: Spontaneous
  Country: BR (occurrence: ES)
  Receive Date: 20140507
  Receipt Date: 20140507
  Transmission Date: 20141212
  Serious: Yes (Death, Hospitalization, Other)
  Sender: FDA-Public Use
  Company Number: PHHY2014ES052841

PATIENT
  Age: 82 Year
  Sex: Female

DRUGS (5)
  1. SINTROM [Suspect]
     Indication: ATRIAL FIBRILLATION
     Dosage: UNK UKN, UNK
     Dates: end: 20131120
  2. SIMVASTATIN [Suspect]
     Indication: HYPERLIPIDAEMIA
     Dosage: 20 MG, QD
     Route: 048
     Dates: end: 20131120
  3. METFORMIN [Concomitant]
     Indication: DIABETES MELLITUS
     Dosage: 1.7 MG, QD
     Route: 048
     Dates: end: 20131120
  4. BISOPROLOL [Concomitant]
     Dosage: 5 MG, QD
     Route: 048
     Dates: end: 20131120
  5. FUROSEMIDE [Concomitant]
     Indication: CARDIAC FAILURE
     Dosage: 40 MG, QD
     Route: 048
     Dates: end: 20131120

REACTIONS (1)
  - Haemorrhage intracranial [Fatal]
